FAERS Safety Report 6101204-2 (Version None)
Quarter: 2009Q1

REPORT INFORMATION
  Report Type: 
  Country: None (occurrence: None)
  Receive Date: 20090227
  Receipt Date: 20080820
  Transmission Date: 20090719
  Serious: Yes (Other)
  Sender: FDA-Public Use
  Company Number: 2008S1015245

PATIENT
  Sex: Male

DRUGS (7)
  1. AMNESTEEM [Suspect]
     Indication: ACNE
     Dosage: ORAL
     Route: 048
     Dates: start: 20030801, end: 20040901
  2. ACCUTANE [Suspect]
     Indication: ACNE
     Dosage: ORAL ; ORAL ; ORAL
     Route: 048
     Dates: start: 20010901, end: 20011101
  3. ACCUTANE [Suspect]
     Indication: ACNE
     Dosage: ORAL ; ORAL ; ORAL
     Route: 048
     Dates: start: 20020201, end: 20020301
  4. ACCUTANE [Suspect]
     Indication: ACNE
     Dosage: ORAL ; ORAL ; ORAL
     Route: 048
     Dates: start: 20020401, end: 20020501
  5. CLARAVIS [Suspect]
     Indication: ACNE
     Dates: start: 20030701
  6. SOTRET [Suspect]
     Indication: ACNE
     Dosage: ORAL ; ORAL
     Route: 048
     Dates: start: 20070801, end: 20070901
  7. SOTRET [Suspect]
     Indication: ACNE
     Dosage: ORAL ; ORAL
     Route: 048
     Dates: start: 20071101, end: 20080301

REACTIONS (1)
  - INFLAMMATORY BOWEL DISEASE [None]
